FAERS Safety Report 7931563-7 (Version None)
Quarter: 2011Q4

REPORT INFORMATION
  Report Type: 
  Country: None (occurrence: None)
  Receive Date: 20111121
  Receipt Date: 20111121
  Transmission Date: 20120403
  Serious: Yes (Other)
  Sender: FDA-Public Use
  Company Number: None

PATIENT
  Age: 71 Year
  Sex: Female
  Weight: 55.338 kg

DRUGS (1)
  1. LEVOTHYROXINE SODIUM [Suspect]
     Indication: THYROID DISORDER
     Dates: start: 20110811, end: 20110816

REACTIONS (6)
  - HEADACHE [None]
  - GAIT DISTURBANCE [None]
  - BALANCE DISORDER [None]
  - PRODUCT SUBSTITUTION ISSUE [None]
  - VISION BLURRED [None]
  - DIZZINESS [None]
